FAERS Safety Report 6632671-3 (Version None)
Quarter: 2010Q1

REPORT INFORMATION
  Report Type: 
  Country: None (occurrence: None)
  Receive Date: 20100312
  Receipt Date: 20100305
  Transmission Date: 20100710
  Serious: Yes (Death, Life-Threatening, Hospitalization, Other)
  Sender: FDA-Public Use
  Company Number: US-ELI_LILLY_AND_COMPANY-US200812005857

PATIENT
  Sex: Male
  Weight: 74.603 kg

DRUGS (26)
  1. BYETTA [Suspect]
     Indication: DIABETES MELLITUS
     Dosage: 10 UG, 2/D
     Route: 058
     Dates: end: 20061201
  2. BYETTA [Suspect]
     Dosage: 5 UG, 2/D
     Dates: start: 20050701
  3. TRICOR [Concomitant]
     Dosage: UNK, DAILY (1/D)
  4. GLUCOPHAGE XR [Concomitant]
     Dosage: UNK, EACH MORNING
  5. VYTORIN [Concomitant]
     Dosage: UNK, DAILY (1/D)
  6. ACTOS [Concomitant]
     Dosage: 45 MG, DAILY (1/D)
  7. MAGNESIUM [Concomitant]
     Dosage: 400 MG, DAILY (1/D)
  8. GLUCOTROL XL [Concomitant]
     Dosage: 10 MG, DAILY (1/D)
  9. CARDURA [Concomitant]
     Dosage: 4 MG, EACH EVENING
  10. ASPIRIN [Concomitant]
     Dosage: 81 MG, DAILY (1/D)
  11. GINKGO BILOBA [Concomitant]
     Dosage: UNK, 2/D
  12. SAW PALMETTO [Concomitant]
     Dosage: 160 MG, 2/D
  13. BENICAR HCT [Concomitant]
     Dosage: UNK, DAILY (1/D)
  14. ATENOLOL [Concomitant]
     Dosage: 25 MG, 2/D
  15. NIASPAN [Concomitant]
     Dosage: 500 MG, OTHER
  16. CO-Q10 [Concomitant]
     Dosage: 150 MG, DAILY (1/D)
  17. GLUCOSAMINE [Concomitant]
     Dosage: 500 MG, 3/D
  18. CHROMIUM PICOLINATE [Concomitant]
     Dosage: 200 MG, DAILY (1/D)
  19. GUGGULIPID [Concomitant]
     Dosage: 500 MG, DAILY (1/D)
  20. OMACOR [Concomitant]
     Dosage: 2 G, 2/D
  21. NEXIUM [Concomitant]
     Dosage: UNK, 2/D
  22. LANTUS [Concomitant]
     Dosage: 43 U, EACH EVENING
  23. VITAMIN B COMPLEX CAP [Concomitant]
  24. M.V.I. [Concomitant]
  25. CIPRO [Concomitant]
     Dosage: UNK, 2/D
     Dates: start: 20061030
  26. TENORMIN [Concomitant]
     Dosage: 25 MG, 2/D

REACTIONS (16)
  - ACUTE RESPIRATORY DISTRESS SYNDROME [None]
  - ACUTE RESPIRATORY FAILURE [None]
  - ARRHYTHMIA [None]
  - BRAIN OEDEMA [None]
  - CIRCULATORY COLLAPSE [None]
  - GASTROENTERITIS [None]
  - HYPOVOLAEMIA [None]
  - LACTIC ACIDOSIS [None]
  - METABOLIC ACIDOSIS [None]
  - MULTI-ORGAN FAILURE [None]
  - NAUSEA [None]
  - OFF LABEL USE [None]
  - PANCREATITIS ACUTE [None]
  - RENAL FAILURE ACUTE [None]
  - SEPSIS [None]
  - SHOCK [None]
